FAERS Safety Report 6755304-4 (Version None)
Quarter: 2010Q2

REPORT INFORMATION
  Report Type: 
  Country: None (occurrence: None)
  Receive Date: 20100604
  Receipt Date: 20100525
  Transmission Date: 20101027
  Serious: Yes (Other)
  Sender: FDA-Public Use
  Company Number: CA-JNJFOC-20100510546

PATIENT
  Sex: Female
  Weight: 76 kg

DRUGS (5)
  1. REMICADE [Suspect]
     Indication: CROHN'S DISEASE
     Dosage: RECIVED 23 DOSES OF INFLIXIMAB
     Route: 042
  2. REMICADE [Suspect]
     Dosage: RECIVED 23 DOSES OF INFLIXIMAB
     Route: 042
  3. ASACOL [Concomitant]
  4. IMURAN [Concomitant]
  5. CIPROFLOXACIN [Concomitant]

REACTIONS (1)
  - BIOPSY [None]
